FAERS Safety Report 4766106-2 (Version None)
Quarter: 2005Q3

REPORT INFORMATION
  Report Type: 
  Country: None (occurrence: None)
  Receive Date: 20050912
  Receipt Date: 20050907
  Transmission Date: 20060218
  Serious: Yes (Other)
  Sender: FDA-Public Use
  Company Number: PHNU2005DE03109

PATIENT
  Sex: Female

DRUGS (1)
  1. EMSELEX EXTENDED RELEASE [Suspect]

REACTIONS (2)
  - AGGRESSION [None]
  - MENTAL DISORDER [None]
